FAERS Safety Report 18856174 (Version 1)
Quarter: 2021Q1

REPORT INFORMATION
  Report Type: Other
  Country: US (occurrence: US)
  Receive Date: 20210206
  Receipt Date: 20210206
  Transmission Date: 20210420
  Serious: Yes (Other)
  Sender: FDA-Public Use
  Company Number: US-INVATECH-000046

PATIENT
  Sex: Female

DRUGS (1)
  1. PYRIDOSTIGMINE BROMIDE. [Suspect]
     Active Substance: PYRIDOSTIGMINE BROMIDE
     Indication: CONGENITAL MYASTHENIC SYNDROME

REACTIONS (3)
  - Condition aggravated [Unknown]
  - Congenital myasthenic syndrome [Unknown]
  - Adverse event [Unknown]
